FAERS Safety Report 23748680 (Version 1)
Quarter: 2024Q2

REPORT INFORMATION
  Report Type: Spontaneous
  Country: US (occurrence: US)
  Receive Date: 20240416
  Receipt Date: 20240416
  Transmission Date: 20240716
  Serious: No
  Sender: FDA-Public Use
  Company Number: US-BRISTOL-MYERS SQUIBB COMPANY-2024-059103

PATIENT
  Age: 77 Year
  Sex: Male
  Weight: 77.56 kg

DRUGS (1)
  1. REVLIMID [Suspect]
     Active Substance: LENALIDOMIDE
     Indication: Plasma cell myeloma
     Dosage: FREQ: 10MG CAPSULE EVERY OTHER DAY FOR 14 DAYS THEN 7 DAYS OFF
     Route: 048

REACTIONS (2)
  - Malaise [Unknown]
  - Off label use [Unknown]
